FAERS Safety Report 8559212-8 (Version None)
Quarter: 2012Q3

REPORT INFORMATION
  Report Type: 
  Country: None (occurrence: None)
  Receive Date: 20120802
  Receipt Date: 20120726
  Transmission Date: 20120928
  Serious: Yes (Death, Hospitalization)
  Sender: FDA-Public Use
  Company Number: BE-BRISTOL-MYERS SQUIBB COMPANY-16556086

PATIENT
  Age: 54 Year
  Sex: Female
  Weight: 45 kg

DRUGS (21)
  1. NYSTATIN [Concomitant]
     Indication: PROPHYLAXIS
     Route: 048
  2. ACETAMINOPHEN [Concomitant]
     Indication: NON-SMALL CELL LUNG CANCER
     Dosage: STOPPED:17APR12 RESTARTED:17APR12-ONG 1 MONTH
     Route: 048
     Dates: start: 20120301
  3. DEXAMETHASONE [Concomitant]
     Indication: NON-SMALL CELL LUNG CANCER
     Dosage: MAR2012-08APR12 4 MG 1MON 11APR12-13APR12 8 MG 2D
     Route: 048
     Dates: start: 20120301
  4. ZOFRAN [Concomitant]
     Indication: PROPHYLAXIS
     Dosage: ONCE
     Route: 042
     Dates: start: 20120410, end: 20120410
  5. CISPLATIN [Suspect]
     Indication: NON-SMALL CELL LUNG CANCER
     Route: 042
     Dates: start: 20120410, end: 20120410
  6. METOCLOPRAMIDE [Concomitant]
     Route: 048
     Dates: start: 20120412
  7. LITICAN [Concomitant]
     Indication: PROPHYLAXIS
     Route: 042
     Dates: start: 20120417, end: 20120417
  8. DURAGESIC-100 [Concomitant]
     Indication: NON-SMALL CELL LUNG CANCER
     Route: 062
     Dates: start: 20120301
  9. GEMCITABINE HYDROCHLORIDE [Suspect]
     Indication: NON-SMALL CELL LUNG CANCER
     Dosage: ON DY1 AND DY 8 OF EACH 3WEEK CYCLE
     Route: 042
     Dates: start: 20120410, end: 20120417
  10. DEXAMETHASONE [Concomitant]
     Indication: PROPHYLAXIS
     Dosage: MAR2012-08APR12 4 MG 1MON 11APR12-13APR12 8 MG 2D
     Route: 048
     Dates: start: 20120301
  11. MEDROL [Concomitant]
     Indication: NON-SMALL CELL LUNG CANCER
     Dosage: 16APR12 16APR12-23APR12  8 MG 7D 23APR12-24 APR12 4 MG 1D
     Route: 048
     Dates: start: 20120409
  12. LORAZEPAM [Concomitant]
     Indication: PROPHYLAXIS
     Dosage: ONCE
     Route: 048
     Dates: start: 20120410, end: 20120410
  13. MOVIPREP [Concomitant]
     Route: 048
     Dates: start: 20120416
  14. CETUXIMAB [Suspect]
     Indication: NON-SMALL CELL LUNG CANCER
     Dosage: PRODUCT STRENGTH IS 5MG/ML
     Route: 042
     Dates: start: 20120410, end: 20120417
  15. OMEPRAZOLE [Concomitant]
     Indication: PROPHYLAXIS
     Route: 048
     Dates: start: 20120301
  16. EMEND [Concomitant]
     Indication: PROPHYLAXIS
     Dosage: 10APR12 11APR12-12APR12 1D
     Route: 048
     Dates: start: 20120410
  17. ZOMETA [Concomitant]
     Indication: NON-SMALL CELL LUNG CANCER
     Dosage: ONCE
     Route: 042
     Dates: start: 20120411, end: 20120411
  18. OXYCODONE HYDROCHLORIDE [Concomitant]
     Route: 048
     Dates: start: 20120420, end: 20120424
  19. CILENGITIDE [Suspect]
     Indication: NON-SMALL CELL LUNG CANCER
     Route: 042
     Dates: start: 20120410, end: 20120417
  20. SYSTEN [Concomitant]
     Indication: PROPHYLAXIS
     Route: 062
  21. CACIT [Concomitant]
     Indication: PROPHYLAXIS
     Route: 048
     Dates: start: 20120301

REACTIONS (2)
  - MULTI-ORGAN FAILURE [None]
  - FEBRILE NEUTROPENIA [None]
